FAERS Safety Report 9500225 (Version 1)
Quarter: 2013Q3

REPORT INFORMATION
  Report Type: Report from Study
  Country: JP (occurrence: JP)
  Receive Date: 20130905
  Receipt Date: 20130905
  Transmission Date: 20140515
  Serious: Yes (Death, Hospitalization, Other)
  Sender: FDA-Public Use
  Company Number: JP-GENZYME-THYM-1004089

PATIENT
  Age: 59 Year
  Sex: Female
  Weight: 64 kg

DRUGS (16)
  1. THYMOGLOBULIN [Suspect]
     Indication: BONE MARROW CONDITIONING REGIMEN
     Dosage: 70 MG, QD
     Route: 065
     Dates: start: 20120611, end: 20120612
  2. TACROLIMUS [Concomitant]
     Indication: PROPHYLAXIS AGAINST GRAFT VERSUS HOST DISEASE
     Dosage: UNK
     Route: 065
     Dates: end: 20120718
  3. VANCOMYCIN [Concomitant]
     Indication: PROPHYLAXIS
     Dosage: UNK
     Route: 065
     Dates: end: 20120613
  4. FIRSTCIN [Concomitant]
     Indication: PROPHYLAXIS
     Dosage: UNK
     Route: 065
     Dates: end: 20120629
  5. VFEND [Concomitant]
     Indication: PROPHYLAXIS
     Dosage: UNK
     Route: 065
     Dates: end: 20120710
  6. FEMARA [Concomitant]
     Indication: PROPHYLAXIS
     Dosage: UNK
     Route: 065
     Dates: end: 20120713
  7. ZOVIRAX [Concomitant]
     Indication: PROPHYLAXIS
     Dosage: UNK
     Route: 065
     Dates: end: 20120713
  8. CRAVIT [Concomitant]
     Indication: PROPHYLAXIS
     Dosage: UNK
     Route: 065
     Dates: end: 20120713
  9. BAKTAR [Concomitant]
     Indication: PROPHYLAXIS
     Dosage: UNK
     Route: 065
     Dates: end: 20120613
  10. CIDOFOVIR [Concomitant]
     Indication: VIRAL TEST POSITIVE
     Dosage: UNK
     Route: 065
     Dates: end: 20120706
  11. CIDOFOVIR [Concomitant]
     Indication: VIRAL TEST POSITIVE
  12. MOGAMULIZUMAB [Concomitant]
     Indication: T-CELL TYPE ACUTE LEUKAEMIA
     Dosage: UNK
     Route: 065
     Dates: start: 20120726, end: 20120802
  13. FUNGUARD [Concomitant]
     Indication: PROPHYLAXIS
     Dosage: UNK
     Route: 065
     Dates: start: 20120710, end: 20120817
  14. MEROPEN [Concomitant]
     Indication: PROPHYLAXIS
     Dosage: UNK
     Route: 065
     Dates: start: 20120710, end: 20120817
  15. DENOSINE [Concomitant]
     Indication: PROPHYLAXIS
     Dosage: UNK
     Route: 065
     Dates: start: 20120714, end: 20120726
  16. MEIACT MS [Concomitant]
     Indication: PROPHYLAXIS
     Dosage: UNK
     Route: 065
     Dates: start: 20120720, end: 20120810

REACTIONS (4)
  - Acute graft versus host disease in skin [Not Recovered/Not Resolved]
  - Renal disorder [Fatal]
  - Leukaemia [Fatal]
  - Cystitis [Recovered/Resolved]
